FAERS Safety Report 20444924 (Version 1)
Quarter: 2022Q1

REPORT INFORMATION
  Report Type: Spontaneous
  Country: JP (occurrence: JP)
  Receive Date: 20220208
  Receipt Date: 20220208
  Transmission Date: 20220423
  Serious: Yes (Hospitalization, Other)
  Sender: FDA-Public Use
  Company Number: JP-UNITED THERAPEUTICS-UNT-2015-006342

PATIENT
  Age: 31 Year
  Sex: Female
  Weight: 56 kg

DRUGS (25)
  1. REMODULIN [Suspect]
     Active Substance: TREPROSTINIL
     Indication: Pulmonary arterial hypertension
     Dosage: UNK UNK, CONTINUING
     Route: 058
     Dates: start: 20150511
  2. REMODULIN [Suspect]
     Active Substance: TREPROSTINIL
     Dosage: 0.00119 ?G/KG. CONTINUING
     Route: 058
     Dates: start: 201505, end: 201505
  3. REMODULIN [Suspect]
     Active Substance: TREPROSTINIL
     Dosage: 0.00476 ?G/KG, CONTINUING
     Route: 058
     Dates: start: 20150514, end: 201505
  4. REMODULIN [Suspect]
     Active Substance: TREPROSTINIL
     Dosage: 0.00952 ?G/KG, CONTINUING
     Route: 058
     Dates: start: 201505, end: 201505
  5. REMODULIN [Suspect]
     Active Substance: TREPROSTINIL
     Dosage: 0.03125 ?G/KG, CONTINUING
     Route: 058
     Dates: start: 201505, end: 201505
  6. REMODULIN [Suspect]
     Active Substance: TREPROSTINIL
     Dosage: 0.05060  ?G/KG, CONTINUING
     Route: 058
     Dates: start: 2015, end: 2015
  7. REMODULIN [Suspect]
     Active Substance: TREPROSTINIL
     Dosage: 0.0744 ?G/KG, CONTINUING
     Route: 058
     Dates: start: 2015
  8. REMODULIN [Suspect]
     Active Substance: TREPROSTINIL
     Dosage: 0.0173 ?G/KG, CONTINUING
     Route: 058
     Dates: start: 20170626, end: 201706
  9. REMODULIN [Suspect]
     Active Substance: TREPROSTINIL
     Dosage: 0.102 ?G/KG, CONTINUING
     Route: 058
     Dates: start: 201706, end: 201706
  10. REMODULIN [Suspect]
     Active Substance: TREPROSTINIL
     Dosage: 0.0769 ?G/KG, CONTINUING
     Route: 058
     Dates: start: 201706, end: 201706
  11. REMODULIN [Suspect]
     Active Substance: TREPROSTINIL
     Dosage: 0.0256 ?G/KG, CONTINUING
     Route: 058
     Dates: start: 201706, end: 201707
  12. REMODULIN [Suspect]
     Active Substance: TREPROSTINIL
     Dosage: UNK, CONTINUING
     Route: 058
     Dates: start: 2017, end: 20170703
  13. EPOPROSTENOL [Suspect]
     Active Substance: EPOPROSTENOL
     Indication: Pulmonary arterial hypertension
     Dosage: 25.6 NG/KG/MIN OVER FIVE DAYS
     Route: 042
     Dates: start: 20170626, end: 20170710
  14. TRACLEER [Concomitant]
     Active Substance: BOSENTAN
     Indication: Pulmonary arterial hypertension
     Dosage: UNK
     Route: 048
     Dates: start: 201502, end: 20151028
  15. ADCIRCA [Concomitant]
     Active Substance: TADALAFIL
     Indication: Pulmonary arterial hypertension
     Dosage: UNK
     Route: 048
     Dates: start: 201502
  16. AZOSEMIDE [Concomitant]
     Active Substance: AZOSEMIDE
     Indication: Pulmonary arterial hypertension
     Dosage: UNK
     Route: 048
  17. BERAPROST SODIUM [Concomitant]
     Active Substance: BERAPROST SODIUM
     Indication: Pulmonary arterial hypertension
     Dosage: UNK
     Route: 048
     Dates: start: 201502, end: 20150522
  18. NEXIUM [Concomitant]
     Active Substance: ESOMEPRAZOLE MAGNESIUM
     Indication: Product used for unknown indication
     Dosage: UNK (AT TAKING LOXONIN (LOXOPROFEN SODIUM HYDRATE))
     Route: 048
     Dates: start: 20150603, end: 20150805
  19. GENTAMICIN SULFATE [Concomitant]
     Active Substance: GENTAMICIN SULFATE
     Indication: Erythema
     Dosage: UNK
     Route: 061
     Dates: start: 20160603, end: 20160715
  20. OPSUMIT [Concomitant]
     Active Substance: MACITENTAN
     Indication: Pulmonary arterial hypertension
     Dosage: UNK
     Route: 048
     Dates: start: 20151028
  21. FERROUS SULFATE [Concomitant]
     Active Substance: FERROUS SULFATE
     Indication: Prophylaxis
     Dosage: UNK
     Route: 048
     Dates: start: 20170703, end: 20170706
  22. SODIUM FERROUS CITRATE [Concomitant]
     Active Substance: SODIUM FERROUS CITRATE
     Indication: Prophylaxis
     Dosage: UNK
     Route: 048
     Dates: start: 20170629, end: 20170703
  23. POTASSIUM CHLORIDE [Concomitant]
     Active Substance: POTASSIUM CHLORIDE
     Indication: Prophylaxis
     Dosage: UNK
     Route: 048
     Dates: start: 20170703, end: 20170710
  24. POTASSIUM CHLORIDE [Concomitant]
     Active Substance: POTASSIUM CHLORIDE
     Indication: Prophylaxis
     Dosage: UNK
     Route: 065
     Dates: start: 20170710, end: 20170714
  25. SPIRONOLACTONE [Concomitant]
     Active Substance: SPIRONOLACTONE
     Indication: Prophylaxis
     Dosage: UNK
     Route: 048
     Dates: start: 20170712, end: 20170716

REACTIONS (17)
  - Blood pressure decreased [Recovered/Resolved]
  - Chest discomfort [Unknown]
  - Dermal cyst [Recovering/Resolving]
  - Platelet count decreased [Recovered/Resolved]
  - Injection site pain [Recovering/Resolving]
  - Injection site induration [Recovering/Resolving]
  - Injection site discolouration [Unknown]
  - Injection site erythema [Recovering/Resolving]
  - Diarrhoea [Recovering/Resolving]
  - Injection site injury [Recovered/Resolved]
  - Oropharyngeal pain [Recovered/Resolved]
  - Inguinal mass [Recovering/Resolving]
  - Pruritus [Recovering/Resolving]
  - Pain in jaw [Recovering/Resolving]
  - Abdominal pain upper [Recovering/Resolving]
  - Decreased appetite [Recovering/Resolving]
  - Nausea [Recovered/Resolved]

NARRATIVE: CASE EVENT DATE: 20150513
